FAERS Safety Report 8019163-4 (Version None)
Quarter: 2011Q4

REPORT INFORMATION
  Report Type: 
  Country: None (occurrence: None)
  Receive Date: 20111227
  Receipt Date: 20111206
  Transmission Date: 20120403
  Serious: Yes (Other)
  Sender: FDA-Public Use
  Company Number: 79870

PATIENT
  Age: 56 Year
  Sex: Male
  Weight: 88.4514 kg

DRUGS (1)
  1. WELLPATCH BACKACHE PAIN RELIEF PATCH, 5% MENTHOL [Suspect]
     Indication: PAIN
     Dosage: PATCH, 1X, TOPICAL
     Route: 061
     Dates: start: 20111203

REACTIONS (4)
  - APPLICATION SITE PRURITUS [None]
  - APPLICATION SITE URTICARIA [None]
  - APPLICATION SITE PAIN [None]
  - APPLICATION SITE ERYTHEMA [None]
